FAERS Safety Report 20196084 (Version 1)
Quarter: 2021Q4

REPORT INFORMATION
  Report Type: Spontaneous
  Country: None (occurrence: US)
  Receive Date: 20211216
  Receipt Date: 20211216
  Transmission Date: 20220303
  Serious: No
  Sender: FDA-Public Use
  Company Number: US-Nexgen Pharma, Inc.-2123115

PATIENT
  Age: 48 Year
  Sex: Male

DRUGS (2)
  1. FIORICET [Suspect]
     Active Substance: ACETAMINOPHEN\BUTALBITAL\CAFFEINE
     Indication: Headache
     Route: 048
  2. CAPLYTA [Suspect]
     Active Substance: LUMATEPERONE

REACTIONS (1)
  - Drug ineffective [Unknown]
